FAERS Safety Report 17396672 (Version 1)
Quarter: 2020Q1

REPORT INFORMATION
  Report Type: Spontaneous
  Country: US (occurrence: US)
  Receive Date: 20200207
  Receipt Date: 20200207
  Transmission Date: 20200409
  Serious: Yes (Hospitalization)
  Sender: FDA-Public Use
  Company Number: None

PATIENT
  Age: 72 Year
  Sex: Female

DRUGS (9)
  1. LEVOCETIRIZINE TAB 5 MG [Concomitant]
  2. BENICAR TAB 5 MG [Concomitant]
  3. KISQALI [Suspect]
     Active Substance: RIBOCICLIB
     Indication: BREAST CANCER
     Route: 048
     Dates: start: 20200102
  4. DEXILANT CAP 60 MG DR [Concomitant]
  5. METHOCARBAMOL TAB 500 MG [Concomitant]
  6. METOPROLOL TAR TAB 25 MG [Concomitant]
  7. FLUOXETINE CAP 20 MG [Concomitant]
  8. LATANOPROST SOL 0.005% [Concomitant]
  9. LETROZOLE TAB 2.5 MG [Concomitant]

REACTIONS (3)
  - Therapy cessation [None]
  - White blood cell count decreased [None]
  - Platelet count decreased [None]
